FAERS Safety Report 8325267 (Version 3)
Quarter: 2013Q2

REPORT INFORMATION
  Report Type: Report from Study
  Country: GB (occurrence: GB)
  Receive Date: 20120106
  Receipt Date: 20130514
  Transmission Date: 20140414
  Serious: Yes (Other)
  Sender: FDA-Public Use
  Company Number: GB-ROCHE-1027632

PATIENT
  Age: 65 Year
  Sex: Female
  Weight: 49 kg

DRUGS (2)
  1. RITUXIMAB [Suspect]
     Indication: PRODUCT USED FOR UNKNOWN INDICATION
     Route: 065
     Dates: start: 20100216
  2. METHOTREXATE [Concomitant]

REACTIONS (2)
  - Basal cell carcinoma [Unknown]
  - Squamous cell carcinoma [Recovered/Resolved]
